FAERS Safety Report 6526458-X (Version None)
Quarter: 2010Q1

REPORT INFORMATION
  Report Type: 
  Country: None (occurrence: None)
  Receive Date: 20100105
  Receipt Date: 20091223
  Transmission Date: 20100710
  Serious: No
  Sender: FDA-Public Use
  Company Number: US-JNJFOC-20091206704

PATIENT
  Sex: Female
  Weight: 63.5 kg

DRUGS (4)
  1. FENTANYL [Suspect]
     Indication: SPINAL COLUMN STENOSIS
     Route: 062
  2. LORTAB [Concomitant]
     Indication: PAIN
     Route: 048
  3. SOMA [Concomitant]
     Indication: MUSCLE SPASMS
     Route: 048
  4. HALCION [Concomitant]
     Indication: SLEEP DISORDER
     Route: 048

REACTIONS (3)
  - DRUG DOSE OMISSION [None]
  - PRODUCT QUALITY ISSUE [None]
  - WITHDRAWAL SYNDROME [None]
